FAERS Safety Report 4447571-7 (Version None)
Quarter: 2004Q3

REPORT INFORMATION
  Report Type: 
  Country: None (occurrence: None)
  Receive Date: 20040913
  Receipt Date: 20040816
  Transmission Date: 20050211
  Serious: Yes (Death, Other)
  Sender: FDA-Public Use
  Company Number: AU-BRISTOL-MYERS SQUIBB COMPANY-12671319

PATIENT
  Age: 62 Year
  Sex: Male
  Weight: 90 kg

DRUGS (5)
  1. ETOPOSIDE [Suspect]
     Indication: ACUTE MYELOID LEUKAEMIA
     Dosage: THERAPY FROM 15-JUL-2004
     Route: 042
     Dates: start: 20040721, end: 20040721
  2. METHOTREXATE [Suspect]
     Indication: ACUTE MYELOID LEUKAEMIA
     Dosage: THERAPY DATES: 15 TO 22-JUL-2004;
     Route: 037
     Dates: start: 20040722, end: 20040722
  3. FLUCONAZOLE [Suspect]
     Indication: ANTIFUNGAL PROPHYLAXIS
     Dosage: 200MG FROM 16 TO 20-JUL THEN 400 MG 20-JUL AND THEREAFTER
     Route: 048
     Dates: start: 20040716, end: 20040720
  4. IDARUBICIN HCL [Suspect]
     Indication: ACUTE MYELOID LEUKAEMIA
     Dosage: THERAPY DATES: 15 TO 17-JUL-2004
     Route: 042
     Dates: start: 20040717, end: 20040717
  5. CYTARABINE [Suspect]
     Indication: ACUTE MYELOID LEUKAEMIA
     Dosage: 12.8 G FROM 15 TO 21-JUL AND 100 MG ON 19-JUL; THERAPY DATES: 15 TO 21-JUL-2004
     Route: 042
     Dates: start: 20040721, end: 20040721

REACTIONS (6)
  - ACUTE MYELOID LEUKAEMIA [None]
  - CONFUSIONAL STATE [None]
  - GRAND MAL CONVULSION [None]
  - INFECTION [None]
  - PYREXIA [None]
  - SUBDURAL HAEMATOMA [None]
